FAERS Safety Report 9205397 (Version 1)
Quarter: 2013Q2

REPORT INFORMATION
  Report Type: Spontaneous
  Country: US (occurrence: US)
  Receive Date: 20130402
  Receipt Date: 20130402
  Transmission Date: 20140414
  Serious: No
  Sender: FDA-Public Use
  Company Number: US-009507513-1303USA013470

PATIENT
  Sex: 0

DRUGS (2)
  1. AZASITE [Suspect]
     Dosage: 1 GTT, BID
     Route: 047
     Dates: start: 20130321, end: 20130322
  2. AZASITE [Suspect]
     Dosage: 1 DF, QD
     Route: 047
     Dates: start: 20130322

REACTIONS (5)
  - Inappropriate schedule of drug administration [Unknown]
  - Product quality issue [Unknown]
  - Product packaging quantity issue [Unknown]
  - Drug dose omission [Unknown]
  - No adverse event [Unknown]
